FAERS Safety Report 22290471 (Version 1)
Quarter: 2023Q2

REPORT INFORMATION
  Report Type: Spontaneous
  Country: US (occurrence: US)
  Receive Date: 20230505
  Receipt Date: 20230505
  Transmission Date: 20230721
  Serious: No
  Sender: FDA-Public Use
  Company Number: US-ANIPHARMA-2022-US-026299

PATIENT
  Age: 65 Year
  Sex: Female
  Weight: 65.77 kg

DRUGS (1)
  1. LITHIUM [Suspect]
     Active Substance: LITHIUM
     Indication: Bipolar I disorder
     Route: 048
     Dates: start: 1979, end: 1994

REACTIONS (1)
  - Hepatic enzyme increased [Recovered/Resolved]
